FAERS Safety Report 7047337-8 (Version None)
Quarter: 2010Q4

REPORT INFORMATION
  Report Type: 
  Country: None (occurrence: None)
  Receive Date: 20101015
  Receipt Date: 20101006
  Transmission Date: 20110411
  Serious: Yes (Hospitalization)
  Sender: FDA-Public Use
  Company Number: PHHY2010JP66976

PATIENT
  Age: 17 Year
  Sex: Male

DRUGS (1)
  1. TEGRETOL [Suspect]
     Indication: FRONTAL LOBE EPILEPSY
     Route: 048

REACTIONS (2)
  - INTENTIONAL OVERDOSE [None]
  - SUICIDE ATTEMPT [None]
